FAERS Safety Report 10067466 (Version 1)
Quarter: 2014Q2

REPORT INFORMATION
  Report Type: Spontaneous
  Country: DE (occurrence: None)
  Receive Date: 20140407
  Receipt Date: 20140407
  Transmission Date: 20141212
  Serious: Yes (Hospitalization, Other)
  Sender: FDA-Public Use
  Company Number: 2014-19295

PATIENT
  Sex: Female

DRUGS (1)
  1. EYLEA [Suspect]
     Indication: PRODUCT USED FOR UNKNOWN INDICATION
     Route: 031

REACTIONS (3)
  - Vitreous floaters [None]
  - Vitreous opacities [None]
  - Vitreous haemorrhage [None]
